FAERS Safety Report 10386576 (Version 2)
Quarter: 2014Q3

REPORT INFORMATION
  Report Type: Report from Study
  Country: NL (occurrence: NL)
  Receive Date: 20140815
  Receipt Date: 20140821
  Transmission Date: 20150326
  Serious: Yes (Death, Life-Threatening, Hospitalization)
  Sender: FDA-Public Use
  Company Number: NL-CELGENEUS-114-21880-14080830

PATIENT
  Age: 59 Year
  Sex: Female

DRUGS (3)
  1. REVLIMID [Suspect]
     Active Substance: LENALIDOMIDE
     Indication: ACUTE MYELOID LEUKAEMIA
     Dosage: 20 MILLIGRAM
     Route: 048
     Dates: start: 20140722, end: 20140803
  2. CYTARABIN [Suspect]
     Active Substance: CYTARABINE
     Indication: ACUTE MYELOID LEUKAEMIA
     Dosage: 3600 MILLIGRAM
     Route: 065
     Dates: start: 20140722, end: 20140727
  3. DAUNORUBICIN [Suspect]
     Active Substance: DAUNORUBICIN
     Indication: ACUTE MYELOID LEUKAEMIA
     Dosage: 105 MILLIGRAM
     Route: 065
     Dates: start: 20140722, end: 20140726

REACTIONS (1)
  - Enterocolitis [Fatal]

NARRATIVE: CASE EVENT DATE: 20140730
